FAERS Safety Report 10063635 (Version 2)
Quarter: 2014Q2

REPORT INFORMATION
  Report Type: Spontaneous
  Country: US (occurrence: US)
  Receive Date: 20140407
  Receipt Date: 20140414
  Transmission Date: 20141212
  Serious: Yes (Death)
  Sender: FDA-Public Use
  Company Number: CHPA2014US004911

PATIENT
  Age: 77 Year
  Sex: Male

DRUGS (1)
  1. MAALOX ANTACID/ANTIGAS RS LIQ COOL MINT [Suspect]
     Indication: DYSPEPSIA
     Route: 048

REACTIONS (1)
  - Lung disorder [Fatal]
